FAERS Safety Report 21283195 (Version 1)
Quarter: 2022Q3

REPORT INFORMATION
  Report Type: 
  Country: CO (occurrence: CO)
  Receive Date: 20220901
  Receipt Date: 20220901
  Transmission Date: 20221026
  Serious: Yes (Hospitalization)
  Sender: FDA-Public Use
  Company Number: CO-Teikoku Pharma USA-TPU2022-00780

PATIENT
  Age: 55 Year
  Sex: Male

DRUGS (1)
  1. LIDOCAINE [Suspect]
     Active Substance: LIDOCAINE
     Indication: Back pain
     Route: 061
     Dates: start: 20220707

REACTIONS (2)
  - Spinal pain [Unknown]
  - Gait disturbance [Unknown]

NARRATIVE: CASE EVENT DATE: 20220822
